FAERS Safety Report 8176196-5 (Version None)
Quarter: 2012Q1

REPORT INFORMATION
  Report Type: 
  Country: None (occurrence: None)
  Receive Date: 20120301
  Receipt Date: 20120221
  Transmission Date: 20120608
  Serious: Yes (Other)
  Sender: FDA-Public Use
  Company Number: CA-JNJFOC-20120210717

PATIENT
  Sex: Male
  Weight: 50 kg

DRUGS (2)
  1. REMICADE [Suspect]
     Indication: CROHN'S DISEASE
     Route: 042
     Dates: start: 20070701
  2. METHOTREXATE [Concomitant]
     Route: 065

REACTIONS (2)
  - SWELLING FACE [None]
  - OROPHARYNGEAL PLAQUE [None]
